FAERS Safety Report 13178084 (Version 2)
Quarter: 2017Q1

REPORT INFORMATION
  Report Type: Spontaneous
  Country: TN (occurrence: TN)
  Receive Date: 20170202
  Receipt Date: 20170210
  Transmission Date: 20170428
  Serious: Yes (Hospitalization)
  Sender: FDA-Public Use
  Company Number: TN-AMGEN-TUNSP2017016065

PATIENT
  Age: 68 Year
  Sex: Female

DRUGS (2)
  1. ENBREL [Suspect]
     Active Substance: ETANERCEPT
     Indication: RHEUMATOID ARTHRITIS
     Dosage: UNK
     Route: 065
     Dates: start: 2016
  2. INSULIN [Concomitant]
     Active Substance: INSULIN NOS
     Indication: DIABETES MELLITUS
     Dosage: UNK

REACTIONS (6)
  - Hyperphagia [Unknown]
  - Weight increased [Unknown]
  - Microalbuminuria [Unknown]
  - Blood glucose fluctuation [Unknown]
  - Oedema peripheral [Unknown]
  - Lymphocytosis [Unknown]
